FAERS Safety Report 5766421-X (Version None)
Quarter: 2008Q2

REPORT INFORMATION
  Report Type: 
  Country: None (occurrence: None)
  Receive Date: 20080611
  Receipt Date: 20080515
  Transmission Date: 20081010
  Serious: No
  Sender: FDA-Public Use
  Company Number: US-BOEHRINGER INGELHEIM GMBH, GERMANY-2008-BP-06052BP

PATIENT
  Sex: Female

DRUGS (3)
  1. ZANTAC 150 [Suspect]
     Indication: GASTROOESOPHAGEAL REFLUX DISEASE
     Route: 048
     Dates: start: 20080412, end: 20080414
  2. XANAX [Concomitant]
     Indication: DEPRESSION
     Dates: start: 19940101
  3. PAXIL [Concomitant]
     Indication: DEPRESSION
     Dates: start: 19940101

REACTIONS (3)
  - DIARRHOEA [None]
  - RASH ERYTHEMATOUS [None]
  - VOMITING [None]
